FAERS Safety Report 10085470 (Version 1)
Quarter: 2014Q2

REPORT INFORMATION
  Report Type: Spontaneous
  Country: US (occurrence: US)
  Receive Date: 20140418
  Receipt Date: 20140418
  Transmission Date: 20141212
  Serious: No
  Sender: FDA-Public Use
  Company Number: US-009507513-1404USA003115

PATIENT
  Sex: Female

DRUGS (2)
  1. NEXPLANON [Suspect]
     Indication: CONTRACEPTION
     Dosage: 68 MG, ONE ROD INSERTED EVERY 3 YEARS
     Route: 059
  2. NEXPLANON [Suspect]
     Dosage: 68 MG, ONE ROD INSERTED EVERY 3 YEARS
     Route: 059

REACTIONS (2)
  - Device kink [Unknown]
  - Pain in extremity [Unknown]
